FAERS Safety Report 14070256 (Version 1)
Quarter: 2017Q4

REPORT INFORMATION
  Report Type: Spontaneous
  Country: US (occurrence: US)
  Receive Date: 20171011
  Receipt Date: 20171011
  Transmission Date: 20180321
  Serious: Yes (Death, Other)
  Sender: FDA-Public Use
  Company Number: US-ROCHE-2004473

PATIENT
  Sex: Male

DRUGS (2)
  1. RITUXAN [Suspect]
     Active Substance: RITUXIMAB
     Indication: FELTY^S SYNDROME
     Dosage: NO
     Route: 065
     Dates: start: 201607
  2. METHOTREXATE. [Concomitant]
     Active Substance: METHOTREXATE
     Indication: FELTY^S SYNDROME
     Dosage: NO
     Route: 065

REACTIONS (6)
  - Death [Fatal]
  - Haemolytic anaemia [Unknown]
  - Listeriosis [Unknown]
  - Intentional product use issue [Fatal]
  - Pancytopenia [Unknown]
  - Off label use [Fatal]
